FAERS Safety Report 6758064-6 (Version None)
Quarter: 2010Q2

REPORT INFORMATION
  Report Type: 
  Country: None (occurrence: None)
  Receive Date: 20100607
  Receipt Date: 20100510
  Transmission Date: 20101027
  Serious: Yes (Hospitalization)
  Sender: FDA-Public Use
  Company Number: PHHY2010FR33678

PATIENT
  Sex: Male
  Weight: 83 kg

DRUGS (2)
  1. MYCOPHENOLIC ACID [Suspect]
     Indication: RENAL TRANSPLANT
     Dosage: 360 MG, TID
  2. NEORAL [Suspect]
     Indication: RENAL TRANSPLANT

REACTIONS (1)
  - PROSTATITIS [None]
